FAERS Safety Report 20623208 (Version 1)
Quarter: 2022Q1

REPORT INFORMATION
  Report Type: Spontaneous
  Country: US (occurrence: US)
  Receive Date: 20220322
  Receipt Date: 20220322
  Transmission Date: 20220423
  Serious: No
  Sender: FDA-Public Use
  Company Number: US-ALLERGAN-2206945US

PATIENT
  Sex: Female

DRUGS (4)
  1. LUMIGAN [Suspect]
     Active Substance: BIMATOPROST
     Indication: Glaucoma
     Dosage: 4 GTT, QHS
     Route: 047
     Dates: start: 20220221, end: 20220223
  2. LUMIGAN [Suspect]
     Active Substance: BIMATOPROST
     Dosage: 4 GTT, QHS
     Route: 047
     Dates: start: 20220216, end: 20220218
  3. VITAMINS NOS [Concomitant]
     Active Substance: VITAMINS
     Route: 048
     Dates: end: 20220219
  4. UNSPECIFIED INGREDIENT [Concomitant]
     Active Substance: UNSPECIFIED INGREDIENT
     Dosage: UNK
     Route: 048

REACTIONS (3)
  - Nausea [Recovering/Resolving]
  - Incorrect dose administered [Unknown]
  - Dizziness [Recovering/Resolving]

NARRATIVE: CASE EVENT DATE: 20220216
